FAERS Safety Report 4284326-0 (Version None)
Quarter: 2004Q1

REPORT INFORMATION
  Report Type: 
  Country: None (occurrence: None)
  Receive Date: 20040130
  Receipt Date: 20040108
  Transmission Date: 20041129
  Serious: Yes (Other)
  Sender: FDA-Public Use
  Company Number: USA031254648

PATIENT
  Age: 84 Year
  Sex: Female
  Weight: 95 kg

DRUGS (15)
  1. EVISTA [Suspect]
     Dosage: 60 MG/DAY
     Dates: start: 20030301
  2. HYDROCHLOROTHIAZIDE [Concomitant]
  3. AMBIEN [Concomitant]
  4. LASIX [Concomitant]
  5. ACEON [Concomitant]
  6. LEVOTHYROXINE SODIUM [Concomitant]
  7. AMIODARONE HCL [Concomitant]
  8. NORVASC [Concomitant]
  9. ATENOLOL [Concomitant]
  10. KCL (POTASSIUM CHLORIDE) [Concomitant]
  11. ASPIRIN [Concomitant]
  12. MULTI-VITAMIN [Concomitant]
  13. ALPRAZOLAM [Concomitant]
  14. QUININE [Concomitant]
  15. FOLIC ACID [Concomitant]

REACTIONS (8)
  - AORTIC STENOSIS [None]
  - APHASIA [None]
  - ATRIAL FIBRILLATION [None]
  - CEREBRAL ISCHAEMIA [None]
  - CONFUSIONAL STATE [None]
  - MICROANGIOPATHY [None]
  - MITRAL VALVE INCOMPETENCE [None]
  - THROMBOEMBOLIC STROKE [None]
